FAERS Safety Report 5005158-1 (Version None)
Quarter: 2006Q2

REPORT INFORMATION
  Report Type: 
  Country: None (occurrence: None)
  Receive Date: 20060515
  Receipt Date: 20060502
  Transmission Date: 20061013
  Serious: Yes (Death)
  Sender: FDA-Public Use
  Company Number: 2006059099

PATIENT
  Age: 11 Year
  Sex: Female

DRUGS (2)
  1. ZITHROMAX [Suspect]
     Indication: ILL-DEFINED DISORDER
     Dosage: ORAL
     Route: 048
     Dates: start: 20060224, end: 20060224
  2. TUSSIONEX [Suspect]
     Indication: COUGH
     Dosage: (ONCE), ORAL
     Route: 048
     Dates: start: 20060224, end: 20060224

REACTIONS (1)
  - DEATH [None]
